FAERS Safety Report 16252065 (Version 1)
Quarter: 2019Q2

REPORT INFORMATION
  Report Type: Spontaneous
  Country: GB (occurrence: GB)
  Receive Date: 20190429
  Receipt Date: 20190429
  Transmission Date: 20190711
  Serious: Yes (Hospitalization)
  Sender: FDA-Public Use
  Company Number: GB-TEVA-2019-GB-1041942

PATIENT
  Age: 68 Year
  Sex: Female
  Weight: 56 kg

DRUGS (15)
  1. LEVOTHYROXINE. [Concomitant]
     Active Substance: LEVOTHYROXINE
  2. OMEPRAZOLE. [Concomitant]
     Active Substance: OMEPRAZOLE
     Dosage: DOSE INCREASED ON DISCHARGE
  3. RISPERIDONE. [Concomitant]
     Active Substance: RISPERIDONE
     Dosage: STOPPED
  4. ZOPICLONE [Concomitant]
     Active Substance: ZOPICLONE
     Dosage: STOPPED
  5. TRAMADOL. [Suspect]
     Active Substance: TRAMADOL
     Indication: FIBROMYALGIA
     Dosage: 50 - 100MG FOUR TIMES A DAY
     Route: 048
     Dates: start: 20181201, end: 20190321
  6. SODIUM PICOSULFATE [Concomitant]
     Active Substance: SODIUM PICOSULFATE
  7. DULOXETINE. [Concomitant]
     Active Substance: DULOXETINE
  8. PROPRANOLOL [Concomitant]
     Active Substance: PROPRANOLOL HYDROCHLORIDE
  9. BENDROFLUMETHIAZIDE [Concomitant]
     Active Substance: BENDROFLUMETHIAZIDE
  10. FELODIPINE. [Suspect]
     Active Substance: FELODIPINE
     Indication: ESSENTIAL HYPERTENSION
     Dosage: 2.5 MILLIGRAM DAILY; IN THE MORNING
     Route: 048
     Dates: start: 20180601, end: 20190321
  11. DIAZEPAM. [Concomitant]
     Active Substance: DIAZEPAM
     Dosage: DOSE REDUCED
  12. FERROUS FUMARATE [Concomitant]
     Active Substance: FERROUS FUMARATE
     Dosage: TO BE RESTARTED 5 DAYS AFTER LAST DOSE OF FERINJECT
     Route: 048
  13. PARACETAMOL [Concomitant]
     Active Substance: ACETAMINOPHEN
  14. NALOXEGOL [Concomitant]
     Active Substance: NALOXEGOL
  15. COSMOCOL [Concomitant]

REACTIONS (8)
  - Iron deficiency anaemia [Unknown]
  - Hiatus hernia [Unknown]
  - Faeces discoloured [Unknown]
  - Vomiting [Recovered/Resolved]
  - Gastritis [Unknown]
  - Condition aggravated [Unknown]
  - Oedema peripheral [Unknown]
  - Abdominal pain upper [Unknown]

NARRATIVE: CASE EVENT DATE: 20181205
